FAERS Safety Report 9613293 (Version 2)
Quarter: 2013Q4

REPORT INFORMATION
  Report Type: Spontaneous
  Country: FR (occurrence: None)
  Receive Date: 20130919
  Receipt Date: 20131009
  Transmission Date: 20140711
  Serious: Yes (Hospitalization)
  Sender: FDA-Public Use
  Company Number: 2013037963

PATIENT
  Age: 55 Year
  Sex: Male

DRUGS (5)
  1. PRIVIGEN [Suspect]
     Indication: CYTOMEGALOVIRUS INFECTION
     Dosage: 100 ML BID, 5 VIALS OF 20 ML, 2 TIMES, INTRAVENOUS (NOT OTHERWISE SPECIFIED)
     Route: 042
     Dates: start: 20121227, end: 20121227
  2. GLICLAZIDE (GLICLAZIDE) [Concomitant]
  3. SIMVASTATIN (SIMVASTATIN) [Concomitant]
  4. RAMIPRIL (RAMIPRIL) [Concomitant]
  5. DAFALGAN (PARACETAMOL) [Concomitant]

REACTIONS (4)
  - Palmar-plantar erythrodysaesthesia syndrome [None]
  - Dyshidrotic eczema [None]
  - Acarodermatitis [None]
  - Drug ineffective [None]
